FAERS Safety Report 17572771 (Version 2)
Quarter: 2020Q2

REPORT INFORMATION
  Report Type: Spontaneous
  Country: US (occurrence: US)
  Receive Date: 20200323
  Receipt Date: 20200420
  Transmission Date: 20200713
  Serious: Yes (Hospitalization)
  Sender: FDA-Public Use
  Company Number: US-GENERICUS, INC.-2020GNR00009

PATIENT
  Age: 25 Year
  Sex: Male

DRUGS (3)
  1. TOBRAMYCIN. [Suspect]
     Active Substance: TOBRAMYCIN
     Dosage: 300 MG (1 VIAL), 1X/DAY 28 DAYS ON AND 28 DAYS OFF
     Dates: start: 20200217, end: 2020
  2. TOBRAMYCIN. [Suspect]
     Active Substance: TOBRAMYCIN
     Dosage: 300 MG (1 VIAL), 2X/DAY 28 DAYS ON AND 28 DAYS OFF
     Dates: start: 201701, end: 20200216
  3. TOBRAMYCIN. [Suspect]
     Active Substance: TOBRAMYCIN
     Dosage: ^2 CONTINUOUSLY^
     Dates: start: 2020

REACTIONS (2)
  - Hepatic lesion [Unknown]
  - Infective pulmonary exacerbation of cystic fibrosis [Unknown]

NARRATIVE: CASE EVENT DATE: 202003
